FAERS Safety Report 6075674-2 (Version None)
Quarter: 2009Q1

REPORT INFORMATION
  Report Type: 
  Country: None (occurrence: None)
  Receive Date: 20090212
  Receipt Date: 20090204
  Transmission Date: 20090719
  Serious: Yes (Hospitalization)
  Sender: FDA-Public Use
  Company Number: US-ABBOTT-09P-163-0501651-00

PATIENT
  Sex: Female
  Weight: 86.26 kg

DRUGS (8)
  1. HUMIRA [Suspect]
     Indication: CROHN'S DISEASE
     Route: 058
     Dates: start: 20070701
  2. PROMETHACIN [Concomitant]
     Indication: DRUG USE FOR UNKNOWN INDICATION
  3. PAXIL [Concomitant]
     Indication: DRUG USE FOR UNKNOWN INDICATION
  4. CLONOPIN [Concomitant]
     Indication: DRUG USE FOR UNKNOWN INDICATION
  5. DARVOCET [Concomitant]
     Indication: DRUG USE FOR UNKNOWN INDICATION
  6. PERCOCET [Concomitant]
     Indication: DRUG USE FOR UNKNOWN INDICATION
  7. ACIDOPHILUS [Concomitant]
     Indication: DRUG USE FOR UNKNOWN INDICATION
  8. ENTOCORT EC [Concomitant]
     Indication: DRUG USE FOR UNKNOWN INDICATION

REACTIONS (7)
  - ABDOMINAL DISTENSION [None]
  - ABDOMINAL PAIN [None]
  - ADHESION [None]
  - DRUG DELIVERY SYSTEM MALFUNCTION [None]
  - NAUSEA [None]
  - SCAR [None]
  - WHITE BLOOD CELL COUNT INCREASED [None]
